FAERS Safety Report 8191994-X (Version None)
Quarter: 2012Q1

REPORT INFORMATION
  Report Type: 
  Country: None (occurrence: None)
  Receive Date: 20120307
  Receipt Date: 20120301
  Transmission Date: 20120608
  Serious: Yes (Other)
  Sender: FDA-Public Use
  Company Number: PHHY2011DE111914

PATIENT
  Sex: Male
  Weight: 80 kg

DRUGS (6)
  1. DIOVAN HCT [Suspect]
     Indication: HYPERTENSION
     Dosage: 160 MG, PER DAY
     Route: 048
     Dates: start: 20080101
  2. MARCUMAR [Concomitant]
     Route: 048
     Dates: end: 20111101
  3. TORSEMIDE [Concomitant]
     Indication: HYPERTENSION
     Dosage: 2 DF (10 MG), QD
     Route: 048
  4. BISOPROLOL FUMARATE [Concomitant]
     Indication: HYPERTENSION
     Dosage: 2 DF (5 MG), QD
  5. CLOPIDOGREL BISULFATE [Suspect]
     Route: 048
     Dates: start: 20100101, end: 20120201
  6. AMLODIPINE [Concomitant]
     Indication: HYPERTENSION
     Dosage: 1 DF (10 MG)QD
     Route: 048

REACTIONS (6)
  - BENIGN NEOPLASM OF PROSTATE [None]
  - HAEMOGLOBIN DECREASED [None]
  - ANAEMIA [None]
  - IRON OVERLOAD [None]
  - DYSPNOEA [None]
  - FATIGUE [None]
